FAERS Safety Report 16202413 (Version 1)
Quarter: 2019Q2

REPORT INFORMATION
  Report Type: Spontaneous
  Country: US (occurrence: US)
  Receive Date: 20190416
  Receipt Date: 20190416
  Transmission Date: 20190711
  Serious: No
  Sender: FDA-Public Use
  Company Number: US-SUNOVION-2019SUN001480

PATIENT
  Sex: Female

DRUGS (1)
  1. LONHALA MAGNAIR [Suspect]
     Active Substance: GLYCOPYRROLATE
     Indication: CHRONIC OBSTRUCTIVE PULMONARY DISEASE
     Dosage: UNK UNK, SINGLE
     Route: 055
     Dates: start: 20190408, end: 20190408

REACTIONS (4)
  - Dyspnoea [Recovered/Resolved]
  - Dysphagia [Recovered/Resolved]
  - Dry mouth [Recovered/Resolved]
  - Pollakiuria [Recovered/Resolved]

NARRATIVE: CASE EVENT DATE: 20190408
